FAERS Safety Report 19231027 (Version 1)
Quarter: 2021Q2

REPORT INFORMATION
  Report Type: Spontaneous
  Country: US (occurrence: US)
  Receive Date: 20210507
  Receipt Date: 20210507
  Transmission Date: 20210717
  Serious: Yes (Death, Hospitalization, Other)
  Sender: FDA-Public Use
  Company Number: US-BRISTOL-MYERS SQUIBB COMPANY-BMS-2021-042179

PATIENT
  Age: 84 Year
  Sex: Female
  Weight: 113.3 kg

DRUGS (1)
  1. ELIQUIS [Suspect]
     Active Substance: APIXABAN
     Indication: CEREBROVASCULAR ACCIDENT PROPHYLAXIS
     Dosage: UNK
     Route: 048

REACTIONS (4)
  - COVID-19 [Fatal]
  - Genital haemorrhage [Unknown]
  - Renal impairment [Unknown]
  - Uterine cancer [Unknown]

NARRATIVE: CASE EVENT DATE: 20210423
